FAERS Safety Report 5741079-4 (Version None)
Quarter: 2008Q2

REPORT INFORMATION
  Report Type: 
  Country: None (occurrence: None)
  Receive Date: 20080516
  Receipt Date: 20080505
  Transmission Date: 20081010
  Serious: Yes (Hospitalization)
  Sender: FDA-Public Use
  Company Number: SG-PFIZER INC-2008039787

PATIENT
  Age: 72 Year
  Sex: Female

DRUGS (9)
  1. PHENYTOIN [Suspect]
     Indication: CONVULSION PROPHYLAXIS
     Route: 048
     Dates: start: 20070808, end: 20070903
  2. AMLODIPINE [Concomitant]
     Route: 048
  3. ACETYLSALICYLIC ACID SRT [Concomitant]
     Route: 048
  4. AUGMENTIN '125' [Concomitant]
     Route: 048
     Dates: start: 20070808, end: 20070813
  5. FOLIC ACID [Concomitant]
     Route: 048
  6. FUROSEMIDE [Concomitant]
     Route: 048
     Dates: start: 20070808, end: 20070903
  7. OMEPRAZOLE [Concomitant]
     Route: 048
  8. POTASSIUM CHLORIDE [Concomitant]
     Route: 048
     Dates: start: 20070808, end: 20070903
  9. SIMVASTATIN [Concomitant]
     Route: 048
     Dates: start: 20070808, end: 20070903

REACTIONS (4)
  - DRUG RASH WITH EOSINOPHILIA AND SYSTEMIC SYMPTOMS [None]
  - PYREXIA [None]
  - RASH MACULO-PAPULAR [None]
  - TRANSAMINASES INCREASED [None]
